FAERS Safety Report 22350820 (Version 1)
Quarter: 2023Q2

REPORT INFORMATION
  Report Type: Spontaneous
  Country: US (occurrence: None)
  Receive Date: 20230521
  Receipt Date: 20230521
  Transmission Date: 20230721
  Serious: Yes (Other)
  Sender: FDA-Public Use
  Company Number: None

PATIENT
  Age: 29 Year
  Sex: Male
  Weight: 63 kg

DRUGS (1)
  1. ESCITALOPRAM [Suspect]
     Active Substance: ESCITALOPRAM OXALATE
     Indication: Anxiety
     Dosage: OTHER QUANTITY : 1 TABLET(S);?FREQUENCY : DAILY;?
     Route: 048
     Dates: start: 20221201, end: 20221203

REACTIONS (8)
  - Confusional state [None]
  - Disturbance in attention [None]
  - Emotional disorder [None]
  - Cognitive disorder [None]
  - Mental impairment [None]
  - Sexual dysfunction [None]
  - Loss of libido [None]
  - Hypoaesthesia [None]

NARRATIVE: CASE EVENT DATE: 20221201
